FAERS Safety Report 15419361 (Version 7)
Quarter: 2019Q4

REPORT INFORMATION
  Report Type: Spontaneous
  Country: US (occurrence: US)
  Receive Date: 20180924
  Receipt Date: 20191127
  Transmission Date: 20200122
  Serious: Yes (Other)
  Sender: FDA-Public Use
  Company Number: US-PFIZER INC-2018380987

PATIENT
  Age: 59 Year
  Sex: Female
  Weight: 81 kg

DRUGS (10)
  1. REVATIO [Suspect]
     Active Substance: SILDENAFIL CITRATE
     Dosage: 60 MG, 3X/DAY (3 TABLETS 3 TIMES A DAY)
     Route: 048
     Dates: start: 20191108
  2. REVATIO [Suspect]
     Active Substance: SILDENAFIL CITRATE
     Dosage: 180 MG, DAILY (3 IN THE MORNING, 3 AT MIDDAY AND 3 IN THE AFTERNOON)
     Dates: end: 201808
  3. REVATIO [Suspect]
     Active Substance: SILDENAFIL CITRATE
     Indication: PULMONARY HYPERTENSION
     Dosage: 60 MG, 3X/DAY (3 TABLETS 3 TIMES A DAY)
     Route: 048
     Dates: end: 201808
  4. REVATIO [Suspect]
     Active Substance: SILDENAFIL CITRATE
     Dosage: 60 MG, 3X/DAY (3 TABLETS 3 TIMES A DAY)
     Route: 048
  5. REVATIO [Suspect]
     Active Substance: SILDENAFIL CITRATE
     Dosage: 60 MG, 3X/DAY (3 TABLETS 3 TIMES A DAY)
     Route: 048
     Dates: start: 20191015
  6. REMODULIN [Concomitant]
     Active Substance: TREPROSTINIL
     Dosage: UNK
  7. REVATIO [Suspect]
     Active Substance: SILDENAFIL CITRATE
     Dosage: 1 DF, 1X/DAY (1 PILL A DAY)
     Route: 048
     Dates: start: 20180917
  8. REVATIO [Suspect]
     Active Substance: SILDENAFIL CITRATE
     Dosage: 40 MG, 3X/DAY (2 PILLS 3 TIMES A DAY)
     Route: 048
     Dates: start: 20181223
  9. REVATIO [Suspect]
     Active Substance: SILDENAFIL CITRATE
     Dosage: 40 MG (2 PILLS), UNK
     Route: 048
  10. REVATIO [Suspect]
     Active Substance: SILDENAFIL CITRATE
     Dosage: UNK, 2X/DAY (1 IN THE MORNING AND 1 IN THE AFTERNOON)

REACTIONS (14)
  - Asphyxia [Unknown]
  - Overdose [Unknown]
  - Choking [Unknown]
  - Wheezing [Unknown]
  - Cough [Unknown]
  - Urinary tract infection [Unknown]
  - Back pain [Unknown]
  - Fatigue [Not Recovered/Not Resolved]
  - Intentional product use issue [Unknown]
  - Dyspnoea [Not Recovered/Not Resolved]
  - Chest pain [Not Recovered/Not Resolved]
  - Dizziness [Not Recovered/Not Resolved]
  - Mobility decreased [Unknown]
  - Feeling drunk [Unknown]

NARRATIVE: CASE EVENT DATE: 2018
